FAERS Safety Report 6639783-9 (Version None)
Quarter: 2010Q1

REPORT INFORMATION
  Report Type: 
  Country: None (occurrence: None)
  Receive Date: 20100318
  Receipt Date: 20100309
  Transmission Date: 20100710
  Serious: Yes (Other)
  Sender: FDA-Public Use
  Company Number: MX-BRISTOL-MYERS SQUIBB COMPANY-14999411

PATIENT
  Age: 56 Year
  Sex: Female

DRUGS (3)
  1. ONGLYZA [Suspect]
     Indication: METABOLIC SYNDROME
     Route: 048
  2. METFORMIN HCL [Suspect]
     Dosage: MONTH AND A HALF AGO
  3. GLIMEPIRIDE [Suspect]
     Dosage: MONTH AND A HALF AGO

REACTIONS (2)
  - BLOOD GLUCOSE INCREASED [None]
  - RENAL FAILURE [None]
